FAERS Safety Report 6659938-7 (Version None)
Quarter: 2010Q1

REPORT INFORMATION
  Report Type: 
  Country: None (occurrence: None)
  Receive Date: 20100330
  Receipt Date: 20100324
  Transmission Date: 20100710
  Serious: Yes (Other)
  Sender: FDA-Public Use
  Company Number: DE-BRISTOL-MYERS SQUIBB COMPANY-14960934

PATIENT
  Sex: Female
  Weight: 75 kg

DRUGS (3)
  1. TAXOL [Suspect]
     Dosage: 2 CYCLES BETWEEN OCT-NOV2009. 1 CYCLE IN JAN2010
     Dates: start: 20091001
  2. CARBOPLATIN [Suspect]
  3. CLEMASTINE FUMARATE [Suspect]

REACTIONS (1)
  - ELECTROCARDIOGRAM QT PROLONGED [None]
